FAERS Safety Report 5335811-1 (Version None)
Quarter: 2007Q2

REPORT INFORMATION
  Report Type: 
  Country: None (occurrence: None)
  Receive Date: 20070322
  Receipt Date: 20070109
  Transmission Date: 20071010
  Serious: No
  Sender: FDA-Public Use
  Company Number: US-CVT-070022

PATIENT
  Age: 60 Year
  Sex: Male

DRUGS (8)
  1. RANEXA [Suspect]
     Indication: ANGINA PECTORIS
     Dosage: 500 MG, BID, ORAL
     Route: 048
     Dates: start: 20061204
  2. CYMBALTA [Concomitant]
  3. XANAX [Concomitant]
  4. ATENOLOL [Concomitant]
  5. ASPIRIN [Concomitant]
  6. LISINOPRIL [Concomitant]
  7. ISORDIL [Concomitant]
  8. FUROSEMIDE [Concomitant]

REACTIONS (2)
  - MOOD ALTERED [None]
  - THERAPEUTIC RESPONSE UNEXPECTED [None]
